FAERS Safety Report 25469384 (Version 2)
Quarter: 2025Q2

REPORT INFORMATION
  Report Type: Spontaneous
  Country: US (occurrence: US)
  Receive Date: 20250623
  Receipt Date: 20250630
  Transmission Date: 20250717
  Serious: No
  Sender: MYLAN
  Company Number: US-MYLANLABS-2025M1051764

PATIENT
  Age: 57 Year
  Sex: Female

DRUGS (8)
  1. ESTRADIOL TRANSDERMAL SYSTEM [Suspect]
     Active Substance: ESTRADIOL
     Indication: Menopausal symptoms
     Dosage: 0.0375 MILLIGRAM, QD (PER DAY, TWICE WEEKLY)
     Dates: start: 202308
  2. ESTRADIOL TRANSDERMAL SYSTEM [Suspect]
     Active Substance: ESTRADIOL
     Dosage: 0.0375 MILLIGRAM, QD (PER DAY, TWICE WEEKLY)
     Route: 062
     Dates: start: 202308
  3. ESTRADIOL TRANSDERMAL SYSTEM [Suspect]
     Active Substance: ESTRADIOL
     Dosage: 0.0375 MILLIGRAM, QD (PER DAY, TWICE WEEKLY)
     Route: 062
     Dates: start: 202308
  4. ESTRADIOL TRANSDERMAL SYSTEM [Suspect]
     Active Substance: ESTRADIOL
     Dosage: 0.0375 MILLIGRAM, QD (PER DAY, TWICE WEEKLY)
     Dates: start: 202308
  5. PROGESTERONE [Concomitant]
     Active Substance: PROGESTERONE
  6. PROGESTERONE [Concomitant]
     Active Substance: PROGESTERONE
     Route: 065
  7. PROGESTERONE [Concomitant]
     Active Substance: PROGESTERONE
     Route: 065
  8. PROGESTERONE [Concomitant]
     Active Substance: PROGESTERONE

REACTIONS (7)
  - Application site scar [Not Recovered/Not Resolved]
  - Application site burn [Not Recovered/Not Resolved]
  - Application site erythema [Not Recovered/Not Resolved]
  - Application site pruritus [Not Recovered/Not Resolved]
  - Product substitution issue [Unknown]
  - Product adhesion issue [Unknown]
  - Product communication issue [Unknown]

NARRATIVE: CASE EVENT DATE: 20250201
